FAERS Safety Report 9203992 (Version 2)
Quarter: 2013Q2

REPORT INFORMATION
  Report Type: Report from Study
  Country: US (occurrence: US)
  Receive Date: 20130402
  Receipt Date: 20130514
  Transmission Date: 20140414
  Serious: Yes (Death, Other)
  Sender: FDA-Public Use
  Company Number: PHEH2013US007472

PATIENT
  Age: 78 Year
  Sex: Female

DRUGS (1)
  1. TOBI [Suspect]
     Indication: CYSTIC FIBROSIS
     Dosage: 300 MG,
     Dates: start: 20130306

REACTIONS (4)
  - Death [Fatal]
  - Pulmonary fibrosis [Unknown]
  - Bronchiectasis [Unknown]
  - Pseudomonas infection [Unknown]
